FAERS Safety Report 7198682-7 (Version None)
Quarter: 2010Q4

REPORT INFORMATION
  Report Type: 
  Country: None (occurrence: None)
  Receive Date: 20101227
  Receipt Date: 20101216
  Transmission Date: 20110411
  Serious: Yes (Other)
  Sender: FDA-Public Use
  Company Number: US-JNJFOC-20101206145

PATIENT
  Age: 56 Year
  Sex: Male

DRUGS (3)
  1. REMICADE [Suspect]
     Indication: ANKYLOSING SPONDYLITIS
     Route: 042
  2. ENBREL [Suspect]
     Indication: ANKYLOSING SPONDYLITIS
     Route: 058
  3. ENBREL [Suspect]
     Route: 058

REACTIONS (2)
  - DEMENTIA ALZHEIMER'S TYPE [None]
  - DRUG INEFFECTIVE [None]
